FAERS Safety Report 11374995 (Version 1)
Quarter: 2015Q3

REPORT INFORMATION
  Report Type: Spontaneous
  Country: GB (occurrence: GB)
  Receive Date: 20150813
  Receipt Date: 20150813
  Transmission Date: 20151125
  Serious: Yes (Other)
  Sender: FDA-Public Use
  Company Number: GB-TEVA-583794ACC

PATIENT
  Age: 68 Year
  Sex: Male
  Weight: 76.2 kg

DRUGS (4)
  1. TAMSULOSIN [Suspect]
     Active Substance: TAMSULOSIN
  2. ENALAPRIL MALEATE. [Concomitant]
     Active Substance: ENALAPRIL MALEATE
  3. VOLTAROL [Interacting]
     Active Substance: DICLOFENAC SODIUM
     Indication: OSTEOARTHRITIS
     Dosage: 150 MILLIGRAM DAILY;
     Route: 048
     Dates: start: 20150714, end: 20150722
  4. LANSOPRAZOLE. [Concomitant]
     Active Substance: LANSOPRAZOLE

REACTIONS (2)
  - Nocturia [Recovered/Resolved]
  - Drug interaction [Unknown]

NARRATIVE: CASE EVENT DATE: 20150715
